FAERS Safety Report 7987967-X (Version None)
Quarter: 2011Q4

REPORT INFORMATION
  Report Type: 
  Country: None (occurrence: None)
  Receive Date: 20111216
  Receipt Date: 20110517
  Transmission Date: 20120403
  Serious: No
  Sender: FDA-Public Use
  Company Number: US-BRISTOL-MYERS SQUIBB COMPANY-15750771

PATIENT
  Age: 73 Year
  Sex: Female
  Weight: 63 kg

DRUGS (8)
  1. CLONIDINE [Concomitant]
     Indication: HYPERTENSION
  2. LEXAPRO [Suspect]
     Indication: ANXIETY
     Dosage: INITIALLY 10MG GIVEN,THEN 5MG.
  3. DIAZEPAM [Concomitant]
     Indication: ANXIETY
  4. PREMARIN [Concomitant]
     Dosage: BUT NOT SUNDAY
  5. PERCOCET [Concomitant]
     Indication: SURGERY
     Dosage: 1DF=7.5/325MG
  6. ABILIFY [Suspect]
     Indication: ANXIETY
     Dosage: RESTART WITH 1 MG DAILY
  7. PREDNISONE [Concomitant]
     Indication: BRONCHITIS
  8. ALBUTEROL SULFATE AUTOHALER [Concomitant]
     Indication: ASTHMA
     Route: 055

REACTIONS (3)
  - TREMOR [None]
  - OEDEMA PERIPHERAL [None]
  - DYSKINESIA [None]
